FAERS Safety Report 8122829-9 (Version None)
Quarter: 2012Q1

REPORT INFORMATION
  Report Type: 
  Country: None (occurrence: None)
  Receive Date: 20120208
  Receipt Date: 20120130
  Transmission Date: 20120608
  Serious: Yes (Other)
  Sender: FDA-Public Use
  Company Number: HR-PFIZER INC-2012032109

PATIENT
  Age: 64 Year
  Sex: Male
  Weight: 85 kg

DRUGS (6)
  1. PANTOPRAZOLE [Suspect]
     Indication: GASTRITIS
     Dosage: 20 MG, 1X/DAY
     Route: 048
     Dates: start: 20100501
  2. ORMIDOL [Concomitant]
     Dosage: 50 MG, 1X/DAY
     Route: 048
  3. ALLOPURINOL [Concomitant]
     Dosage: 100 MG, 1X/DAY
     Route: 048
  4. FUROSEMIDE [Interacting]
     Indication: CARDIAC FAILURE
     Dosage: 40 MG, 1X/DAY
     Route: 048
  5. NEORAL [Interacting]
     Indication: HEART TRANSPLANT
     Dosage: 100 MG, 1X/DAY
     Route: 048
     Dates: start: 20020701
  6. IMURAN [Concomitant]
     Indication: HEART TRANSPLANT
     Dosage: 25 MG, 1X/DAY
     Route: 048
     Dates: start: 20020701

REACTIONS (4)
  - BLOOD PARATHYROID HORMONE INCREASED [None]
  - DRUG INTERACTION [None]
  - HYPOMAGNESAEMIA [None]
  - TREMOR [None]
